FAERS Safety Report 19801455 (Version 1)
Quarter: 2021Q3

REPORT INFORMATION
  Report Type: Spontaneous
  Country: IN (occurrence: IN)
  Receive Date: 20210907
  Receipt Date: 20210907
  Transmission Date: 20211014
  Serious: Yes (Hospitalization, Other)
  Sender: FDA-Public Use
  Company Number: IN-CELLTRION-2021-IN-000206

PATIENT
  Age: 63 Year
  Sex: Female
  Weight: 90 kg

DRUGS (2)
  1. RISPERIDONE (NON?SPECIFIC) [Suspect]
     Active Substance: RISPERIDONE
     Indication: SCHIZOPHRENIA
     Dosage: 4MG
     Route: 048
  2. AMISULPRIDE [Suspect]
     Active Substance: AMISULPRIDE
     Indication: SCHIZOPHRENIA
     Dosage: 50MG
     Route: 048

REACTIONS (2)
  - Binge eating [Recovered/Resolved]
  - Weight increased [Recovering/Resolving]
